FAERS Safety Report 9142628 (Version 1)
Quarter: 2013Q1

REPORT INFORMATION
  Report Type: Spontaneous
  Country: CA (occurrence: CA)
  Receive Date: 20130306
  Receipt Date: 20130306
  Transmission Date: 20140127
  Serious: Yes (Hospitalization)
  Sender: FDA-Public Use
  Company Number: CA-JNJFOC-20130215634

PATIENT
  Sex: Female

DRUGS (9)
  1. XARELTO [Suspect]
     Indication: EMBOLISM VENOUS
     Route: 048
     Dates: start: 20130129
  2. XARELTO [Suspect]
     Indication: EMBOLISM VENOUS
     Route: 048
     Dates: start: 20130121
  3. XARELTO [Suspect]
     Indication: EMBOLISM VENOUS
     Dosage: 10 MG OR 20 MG
     Route: 048
     Dates: start: 201211
  4. XARELTO [Suspect]
     Indication: DEEP VEIN THROMBOSIS
     Route: 048
     Dates: start: 20130121
  5. XARELTO [Suspect]
     Indication: DEEP VEIN THROMBOSIS
     Dosage: 10 MG OR 20 MG
     Route: 048
     Dates: start: 201211
  6. XARELTO [Suspect]
     Indication: DEEP VEIN THROMBOSIS
     Route: 048
     Dates: start: 20130129
  7. HEPARIN [Concomitant]
     Route: 065
  8. ENOXAPARIN [Concomitant]
     Route: 065
  9. PREDNISONE [Concomitant]
     Route: 065

REACTIONS (2)
  - Gastrointestinal haemorrhage [Recovered/Resolved]
  - Haemoglobin abnormal [Recovered/Resolved]
